FAERS Safety Report 6588011-1 (Version None)
Quarter: 2010Q1

REPORT INFORMATION
  Report Type: 
  Country: None (occurrence: None)
  Receive Date: 20100218
  Receipt Date: 20100210
  Transmission Date: 20100710
  Serious: Yes (Other)
  Sender: FDA-Public Use
  Company Number: US-TYCO HEALTHCARE/MALLINCKRODT-T201000617

PATIENT
  Sex: Male

DRUGS (1)
  1. OPTIRAY 350 [Suspect]
     Indication: SCAN
     Dosage: 120 ML, SINGLE
     Route: 042
     Dates: start: 20100122, end: 20100122

REACTIONS (5)
  - DYSPHAGIA [None]
  - ERYTHEMA [None]
  - SNEEZING [None]
  - SWELLING FACE [None]
  - URTICARIA [None]
